FAERS Safety Report 18484881 (Version 1)
Quarter: 2020Q4

REPORT INFORMATION
  Report Type: Spontaneous
  Country: US (occurrence: US)
  Receive Date: 20201110
  Receipt Date: 20201110
  Transmission Date: 20210114
  Serious: No
  Sender: FDA-Public Use
  Company Number: US-OTSUKA-2019_042124

PATIENT
  Sex: Male

DRUGS (1)
  1. NUEDEXTA [Suspect]
     Active Substance: DEXTROMETHORPHAN HYDROBROMIDE\QUINIDINE SULFATE
     Indication: AFFECT LABILITY
     Dosage: 1 DF, QD
     Route: 065
     Dates: start: 2019, end: 2019

REACTIONS (2)
  - Liver function test increased [Unknown]
  - Product use issue [Unknown]

NARRATIVE: CASE EVENT DATE: 2019
